FAERS Safety Report 5179033-6 (Version None)
Quarter: 2006Q4

REPORT INFORMATION
  Report Type: 
  Country: None (occurrence: None)
  Receive Date: 20061208
  Receipt Date: 20061122
  Transmission Date: 20070319
  Serious: Yes (Hospitalization)
  Sender: FDA-Public Use
  Company Number: 6027587

PATIENT
  Age: 59 Year
  Sex: Male

DRUGS (6)
  1. ACYCLOVIR [Suspect]
     Indication: MULTIPLE MYELOMA
     Dosage: 800 MG (400 MG, 2 IN 1 D), ORAL
     Route: 048
     Dates: start: 20050901, end: 20060808
  2. LYRICA [Concomitant]
  3. PANODIL [Concomitant]
  4. EUSAPRIM FORTE (TABLET) [Concomitant]
  5. DOLCONTIN [Concomitant]
  6. IDEOS [Concomitant]

REACTIONS (8)
  - AMNESIA [None]
  - DEHYDRATION [None]
  - DYSPNOEA [None]
  - HAEMODIALYSIS [None]
  - HYPERVISCOSITY SYNDROME [None]
  - RENAL FAILURE [None]
  - SOMNOLENCE [None]
  - STEM CELL TRANSPLANT [None]
